FAERS Safety Report 23404983 (Version 2)
Quarter: 2024Q1

REPORT INFORMATION
  Report Type: Spontaneous
  Country: US (occurrence: US)
  Receive Date: 20240116
  Receipt Date: 20240119
  Transmission Date: 20240409
  Serious: Yes (Hospitalization)
  Sender: FDA-Public Use
  Company Number: US-MYLANLABS-2024M1001966

PATIENT
  Sex: Female
  Weight: 76.2 kg

DRUGS (1)
  1. GLATIRAMER ACETATE [Suspect]
     Active Substance: GLATIRAMER ACETATE
     Indication: Secondary progressive multiple sclerosis
     Dosage: 40 MILLIGRAM, 3XW
     Route: 065

REACTIONS (3)
  - Pneumonia [Unknown]
  - Herpes zoster [Unknown]
  - Multiple sclerosis relapse [Unknown]
